FAERS Safety Report 4693534-6 (Version None)
Quarter: 2005Q2

REPORT INFORMATION
  Report Type: 
  Country: None (occurrence: None)
  Receive Date: 20050615
  Receipt Date: 20050601
  Transmission Date: 20051028
  Serious: Yes (Hospitalization)
  Sender: FDA-Public Use
  Company Number: 2005BI010853

PATIENT
  Age: 54 Year
  Sex: Female

DRUGS (1)
  1. AVONEX [Suspect]
     Indication: MULTIPLE SCLEROSIS
     Dosage: IM
     Route: 030

REACTIONS (7)
  - ANOREXIA [None]
  - ASTHENIA [None]
  - BLOOD CALCIUM INCREASED [None]
  - FALL [None]
  - LABORATORY TEST ABNORMAL [None]
  - NAUSEA [None]
  - RENAL FAILURE [None]
